FAERS Safety Report 21644621 (Version 1)
Quarter: 2022Q4

REPORT INFORMATION
  Report Type: Spontaneous
  Country: PT (occurrence: PT)
  Receive Date: 20221125
  Receipt Date: 20221125
  Transmission Date: 20230112
  Serious: Yes (Other)
  Sender: FDA-Public Use
  Company Number: PT-TAKEDA-2022TUS089143

PATIENT
  Age: 84 Year
  Sex: Female
  Weight: 90 kg

DRUGS (2)
  1. ALBUMIN HUMAN [Suspect]
     Active Substance: ALBUMIN HUMAN
     Indication: Oedema
     Dosage: 10 GRAM, Q12H
     Route: 042
     Dates: start: 20221014, end: 20221016
  2. MEROPENEM [Concomitant]
     Active Substance: MEROPENEM

REACTIONS (1)
  - Rash pruritic [Recovered/Resolved]

NARRATIVE: CASE EVENT DATE: 20221016
